FAERS Safety Report 4364387-0 (Version None)
Quarter: 2004Q2

REPORT INFORMATION
  Report Type: 
  Country: None (occurrence: None)
  Receive Date: 20040519
  Receipt Date: 20040506
  Transmission Date: 20050107
  Serious: Yes (Hospitalization)
  Sender: FDA-Public Use
  Company Number: 2004027267

PATIENT
  Age: 42 Year
  Sex: Female

DRUGS (4)
  1. CETIRIZINE HCL [Suspect]
     Indication: PREMEDICATION
     Dates: start: 20030330, end: 20030608
  2. ALPRAZOLAM [Suspect]
     Indication: ILL-DEFINED DISORDER
     Dates: start: 20030501, end: 20030605
  3. ANCESTIM (ANCESTIM) [Suspect]
     Indication: APHERESIS
     Dosage: 20 MG/KG (1 IN 1 D)
     Dates: start: 20030601, end: 20030604
  4. FILGRASTIM (FILGRASTIM) [Suspect]
     Indication: PERIPHERAL BLOOD STEM CELL APHERESIS
     Dosage: 5 MG/KG (1 IN 1 D)
     Dates: start: 20030601, end: 20030604

REACTIONS (2)
  - DYSPNOEA EXERTIONAL [None]
  - LETHARGY [None]
